FAERS Safety Report 8165301-2 (Version None)
Quarter: 2012Q1

REPORT INFORMATION
  Report Type: 
  Country: None (occurrence: None)
  Receive Date: 20120223
  Receipt Date: 20120223
  Transmission Date: 20120608
  Serious: No
  Sender: FDA-Public Use
  Company Number: None

PATIENT
  Sex: Male
  Weight: 68.0396 kg

DRUGS (1)
  1. FORADIL [Suspect]

REACTIONS (5)
  - HYPERHIDROSIS [None]
  - SPEECH DISORDER [None]
  - VISUAL IMPAIRMENT [None]
  - SKIN DISORDER [None]
  - FATIGUE [None]
